FAERS Safety Report 12437516 (Version 1)
Quarter: 2016Q2

REPORT INFORMATION
  Report Type: Spontaneous
  Country: US (occurrence: None)
  Receive Date: 20160602
  Receipt Date: 20160602
  Transmission Date: 20160815
  Serious: Yes (Hospitalization)
  Sender: FDA-Public Use
  Company Number: 2016AQU000129

PATIENT
  Age: 51 Year
  Sex: Male

DRUGS (1)
  1. DOXYCYCLINE (DOXYCYCLINE) UNKNOWN [Suspect]
     Active Substance: DOXYCYCLINE
     Indication: LYME DISEASE
     Route: 048

REACTIONS (18)
  - Blood osmolarity increased [None]
  - Blood sodium increased [None]
  - Blood bicarbonate decreased [None]
  - Blood urea increased [None]
  - Blood glucose increased [None]
  - Calcium ionised decreased [None]
  - Glycosylated haemoglobin increased [None]
  - PO2 increased [None]
  - Body temperature decreased [None]
  - Pancreatitis acute [None]
  - Aspartate aminotransferase increased [None]
  - Haemodialysis [None]
  - Alanine aminotransferase increased [None]
  - Respiratory rate increased [None]
  - Blood pressure decreased [None]
  - Blood creatinine increased [None]
  - Blood pH decreased [None]
  - Multiple organ dysfunction syndrome [None]
